FAERS Safety Report 6964010-2 (Version None)
Quarter: 2010Q3

REPORT INFORMATION
  Report Type: 
  Country: None (occurrence: None)
  Receive Date: 20100902
  Receipt Date: 20100902
  Transmission Date: 20110219
  Serious: Yes (Other)
  Sender: FDA-Public Use
  Company Number: None

PATIENT
  Age: 62 Year
  Sex: Male

DRUGS (1)
  1. NUTROPIN AQ [Suspect]
     Indication: GROWTH HORMONE DEFICIENCY
     Dosage: 0.3MG DAILY SQ
     Route: 058
     Dates: start: 20060526, end: 20100901

REACTIONS (7)
  - BLOOD PRESSURE INCREASED [None]
  - CONVULSION [None]
  - DYSURIA [None]
  - FLANK PAIN [None]
  - HEART RATE INCREASED [None]
  - MUSCLE CONTRACTIONS INVOLUNTARY [None]
  - SOMNOLENCE [None]
